FAERS Safety Report 13037240 (Version 1)
Quarter: 2016Q4

REPORT INFORMATION
  Report Type: Report from Study
  Country: US (occurrence: US)
  Receive Date: 20161216
  Receipt Date: 20161216
  Transmission Date: 20170207
  Serious: Yes (Hospitalization)
  Sender: FDA-Public Use
  Company Number: US-TEVA-720117USA

PATIENT
  Sex: Male

DRUGS (3)
  1. ERLOTINIB HCL BLINDED (CODE NOT BROKEN) [Suspect]
     Active Substance: ERLOTINIB HYDROCHLORIDE
     Dosage: 150 MILLIGRAM DAILY;
     Route: 048
     Dates: start: 20160812
  2. CARBOPLATIN. [Suspect]
     Active Substance: CARBOPLATIN
     Dosage: AUC 6 EVERY 21 DAYS
     Route: 042
     Dates: start: 20160811
  3. DOCETAXEL. [Suspect]
     Active Substance: DOCETAXEL
     Dosage: 75 MG/M2, EVERY 21 DAYS
     Route: 042
     Dates: start: 20160811

REACTIONS (1)
  - Sinus bradycardia [Unknown]

NARRATIVE: CASE EVENT DATE: 20160816
